FAERS Safety Report 21089704 (Version 9)
Quarter: 2023Q2

REPORT INFORMATION
  Report Type: Report from Study
  Country: US (occurrence: US)
  Receive Date: 20220715
  Receipt Date: 20230619
  Transmission Date: 20230721
  Serious: Yes (Death, Life-Threatening, Hospitalization, Other)
  Sender: FDA-Public Use
  Company Number: US-BAXTER-2022BAX014414

PATIENT
  Age: 91 Year
  Sex: Female
  Weight: 81.6 kg

DRUGS (24)
  1. DOXORUBICIN [Suspect]
     Active Substance: DOXORUBICIN
     Indication: Diffuse large B-cell lymphoma stage I
     Dosage: (DOSAGE FORM- SOLUTION FOR INFUSION) 25 MG/M2, EVERY 3 WK (R-MINI-CHOP)
     Route: 042
     Dates: start: 20220505, end: 20220616
  2. CYCLOPHOSPHAMIDE [Suspect]
     Active Substance: CYCLOPHOSPHAMIDE
     Indication: Diffuse large B-cell lymphoma stage I
     Dosage: (DOSAGE FORM- POWDER FOR SOLUTION FOR INJECTION) 400 MG/M2, EVERY 3 WK (R-MINI-CHOP)
     Route: 042
     Dates: start: 20220505, end: 20220616
  3. EPCORITAMAB [Suspect]
     Active Substance: EPCORITAMAB
     Indication: Diffuse large B-cell lymphoma stage I
     Dosage: PRIMING DOSE: 0.16 MG, SINGLE (CYCLE 1 DAY 1) (DUOBODY-CD3XCD20)
     Route: 058
     Dates: start: 20220505, end: 20220505
  4. EPCORITAMAB [Suspect]
     Active Substance: EPCORITAMAB
     Dosage: INTERMEDIATE DOSE: 0.8 MG, SINGLE
     Route: 058
     Dates: start: 20220512, end: 20220512
  5. EPCORITAMAB [Suspect]
     Active Substance: EPCORITAMAB
     Dosage: FULL DOSE: 48 MG, WEEKLY
     Route: 058
     Dates: start: 20220519, end: 20220609
  6. EPCORITAMAB [Suspect]
     Active Substance: EPCORITAMAB
     Dosage: FULL DOSE: 48 MG, 1Q3W (C3D1, PRIOR TO THE EVENTS ONSET)
     Route: 058
     Dates: start: 20220616, end: 20220616
  7. VINCRISTINE [Suspect]
     Active Substance: VINCRISTINE
     Indication: Diffuse large B-cell lymphoma stage I
     Dosage: 1 MG/M2, EVERY 3 WK (R-MINI-CHOP)
     Route: 042
     Dates: start: 20220505, end: 20220616
  8. RITUXIMAB [Suspect]
     Active Substance: RITUXIMAB
     Indication: Diffuse large B-cell lymphoma stage I
     Dosage: 375 MG/M2, EVERY 3 WK (R-MINI-CHOP)
     Route: 042
     Dates: start: 20220505, end: 20220616
  9. PREDNISONE [Suspect]
     Active Substance: PREDNISONE
     Indication: Diffuse large B-cell lymphoma stage I
     Dosage: 50 MG, QD (R-MINI-CHOP)
     Route: 048
     Dates: start: 20220505, end: 20220508
  10. DIPHENHYDRAMINE [Concomitant]
     Active Substance: DIPHENHYDRAMINE
     Indication: Premedication
     Dosage: 50 MG
     Route: 048
     Dates: start: 20220505, end: 20220616
  11. DIPHENHYDRAMINE [Concomitant]
     Active Substance: DIPHENHYDRAMINE
     Dosage: 50 MG
     Route: 048
     Dates: start: 20220616, end: 20220616
  12. ACETAMINOPHEN [Concomitant]
     Active Substance: ACETAMINOPHEN
     Indication: Premedication
     Dosage: 650 MG
     Route: 048
     Dates: start: 20220505, end: 20220616
  13. ACETAMINOPHEN [Concomitant]
     Active Substance: ACETAMINOPHEN
     Dosage: 650 MG
     Route: 048
     Dates: start: 20220616, end: 20220616
  14. PANTOPRAZOLE [Concomitant]
     Active Substance: PANTOPRAZOLE
     Indication: Prophylaxis
     Dosage: UNK
     Route: 065
     Dates: start: 20220521
  15. SIMVASTATIN [Concomitant]
     Active Substance: SIMVASTATIN
     Dosage: ONGOING
     Route: 065
  16. LEVOTHYROXINE [Concomitant]
     Active Substance: LEVOTHYROXINE
     Dosage: ONGOING
     Route: 065
  17. ACYCLOVIR [Concomitant]
     Active Substance: ACYCLOVIR
     Indication: Prophylaxis
     Dosage: UNK
     Route: 065
     Dates: start: 20220701, end: 20220714
  18. ENALAPRIL [Concomitant]
     Active Substance: ENALAPRIL
     Dosage: UNK
     Route: 065
  19. CEFTRIAXONE [Concomitant]
     Active Substance: CEFTRIAXONE
     Indication: Cytomegalovirus infection reactivation
     Dosage: 1 G, QD
     Route: 042
     Dates: start: 20220621, end: 20220624
  20. NEULASTA [Concomitant]
     Active Substance: PEGFILGRASTIM
     Dosage: ONPRO KIT, 6 MG (POST STUDY DRUG TREATMENT)
     Route: 065
     Dates: start: 20220526, end: 20220616
  21. PROTONIX [Concomitant]
     Active Substance: PANTOPRAZOLE SODIUM
     Dosage: UNK
     Route: 065
     Dates: start: 20220622, end: 20220704
  22. VALTREX [Concomitant]
     Active Substance: VALACYCLOVIR HYDROCHLORIDE
     Dosage: UNK
     Route: 065
     Dates: start: 20220714, end: 20220720
  23. NYSTATIN [Concomitant]
     Active Substance: NYSTATIN
     Dosage: UNK
     Route: 065
     Dates: start: 20220622, end: 20220714
  24. ALUMINIUM HYDROXIDE;MAGNESIUM CARBONATE [Concomitant]
     Dosage: ONGOING
     Route: 065
     Dates: start: 20220515

REACTIONS (2)
  - Confusional state [Fatal]
  - Cytomegalovirus infection reactivation [Fatal]

NARRATIVE: CASE EVENT DATE: 20220619
